FAERS Safety Report 9303429 (Version 3)
Quarter: 2013Q3

REPORT INFORMATION
  Report Type: Report from Study
  Country: US (occurrence: US)
  Receive Date: 20130522
  Receipt Date: 20130712
  Transmission Date: 20140515
  Serious: Yes (Other)
  Sender: FDA-Public Use
  Company Number: US-ELI_LILLY_AND_COMPANY-US201305004439

PATIENT
  Sex: Female

DRUGS (9)
  1. TERIPARATIDE [Suspect]
     Indication: OSTEOPOROSIS
     Dosage: 20 UG, QD
     Dates: start: 2003
  2. TERIPARATIDE [Suspect]
     Dosage: 20 UG, QD
  3. TERIPARATIDE [Suspect]
     Dosage: 20 UG, QD
  4. TERIPARATIDE [Suspect]
     Dosage: 20 UG, QD
     Dates: start: 201304
  5. EVISTA [Suspect]
     Dosage: UNK
     Dates: end: 201304
  6. FEVASTIN [Concomitant]
     Dosage: UNK, MONTHLY (1/M)
  7. SYNTHROID [Concomitant]
     Dosage: UNK
  8. PPI                                /00661201/ [Concomitant]
  9. TIMOLOL [Concomitant]
     Indication: INTRAOCULAR PRESSURE INCREASED
     Dosage: UNK

REACTIONS (25)
  - Osteonecrosis [Unknown]
  - Drug ineffective [Unknown]
  - Injection site extravasation [Unknown]
  - Pneumonia [Unknown]
  - Facial bones fracture [Unknown]
  - Facial bones fracture [Unknown]
  - Hand fracture [Unknown]
  - Rib fracture [Unknown]
  - Glaucoma [Unknown]
  - Cataract [Unknown]
  - Glaucoma [Unknown]
  - Cataract [Unknown]
  - Wrist fracture [Unknown]
  - Upper limb fracture [Unknown]
  - Fall [Unknown]
  - Spinal compression fracture [Unknown]
  - Body height decreased [Unknown]
  - Spinal disorder [Unknown]
  - Kyphosis [Unknown]
  - Lung disorder [Unknown]
  - Neck deformity [Unknown]
  - Visual impairment [Unknown]
  - Incorrect dose administered [Unknown]
  - Upper limb fracture [Unknown]
  - Nausea [Unknown]
